FAERS Safety Report 7568342-9 (Version None)
Quarter: 2011Q2

REPORT INFORMATION
  Report Type: 
  Country: None (occurrence: None)
  Receive Date: 20110623
  Receipt Date: 20110524
  Transmission Date: 20111010
  Serious: Yes (Hospitalization)
  Sender: FDA-Public Use
  Company Number: A0930427A

PATIENT
  Age: 84 Year
  Sex: Male

DRUGS (2)
  1. VOTRIENT [Suspect]
     Dosage: 800MG PER DAY
     Route: 065
     Dates: start: 20110401
  2. COUMADIN [Suspect]
     Route: 065

REACTIONS (3)
  - HAEMATURIA [None]
  - URINARY BLADDER HAEMORRHAGE [None]
  - CONDITION AGGRAVATED [None]
